FAERS Safety Report 11965483 (Version 3)
Quarter: 2017Q1

REPORT INFORMATION
  Report Type: Spontaneous
  Country: JP (occurrence: JP)
  Receive Date: 20160127
  Receipt Date: 20170209
  Transmission Date: 20170428
  Serious: Yes (Death, Hospitalization)
  Sender: FDA-Public Use
  Company Number: JP-SUN PHARMACEUTICAL INDUSTRIES LTD-2016R1-110167

PATIENT
  Age: 74 Year
  Sex: Male
  Weight: 43.4 kg

DRUGS (2)
  1. DOCETAXEL. [Suspect]
     Active Substance: DOCETAXEL
     Indication: ANGIOSARCOMA
  2. DOCETAXEL. [Suspect]
     Active Substance: DOCETAXEL
     Indication: ADJUVANT THERAPY
     Dosage: UNK
     Route: 042

REACTIONS (4)
  - Condition aggravated [Fatal]
  - Pneumothorax [Unknown]
  - Metastases to lung [Unknown]
  - Anaemia [Unknown]
